FAERS Safety Report 6559134-8 (Version None)
Quarter: 2010Q1

REPORT INFORMATION
  Report Type: 
  Country: None (occurrence: None)
  Receive Date: 20100129
  Receipt Date: 20100122
  Transmission Date: 20100710
  Serious: Yes (Hospitalization)
  Sender: FDA-Public Use
  Company Number: US-AMGEN-QUU387649

PATIENT
  Sex: Female

DRUGS (2)
  1. ENBREL [Suspect]
     Indication: RHEUMATOID ARTHRITIS
     Route: 058
     Dates: start: 20090220
  2. UNSPECIFIED MEDICATION [Concomitant]

REACTIONS (5)
  - CYSTITIS [None]
  - GASTROINTESTINAL INFECTION [None]
  - KIDNEY INFECTION [None]
  - MALLORY-WEISS SYNDROME [None]
  - PNEUMONIA [None]
